FAERS Safety Report 5498689-1 (Version None)
Quarter: 2007Q4

REPORT INFORMATION
  Report Type: 
  Country: None (occurrence: None)
  Receive Date: 20071024
  Receipt Date: 20071024
  Transmission Date: 20080405
  Serious: Yes (Hospitalization)
  Sender: FDA-Public Use
  Company Number: None

PATIENT
  Age: 59 Year
  Sex: Male

DRUGS (2)
  1. GLYBURIDE [Suspect]
     Indication: DIABETES MELLITUS
     Dosage: 10MG BID PO
     Route: 048
     Dates: start: 20070702, end: 20071010
  2. INSULIN [Suspect]
     Dosage: 80UNITS ONCE SQ
     Route: 058
     Dates: start: 20070104

REACTIONS (4)
  - ASTHENIA [None]
  - FALL [None]
  - HYPOGLYCAEMIA [None]
  - MUSCULAR WEAKNESS [None]
